FAERS Safety Report 25896145 (Version 2)
Quarter: 2025Q4

REPORT INFORMATION
  Report Type: Spontaneous
  Country: EU (occurrence: EU)
  Receive Date: 20251008
  Receipt Date: 20251017
  Transmission Date: 20260117
  Serious: Yes (Other)
  Sender: SANOFI AVENTIS
  Company Number: EU-SANOFI-02670039

PATIENT
  Age: 40 Year
  Sex: Female

DRUGS (2)
  1. FERRLECIT [Suspect]
     Active Substance: SODIUM FERRIC GLUCONATE COMPLEX
     Indication: Heavy menstrual bleeding
     Dosage: ALL 6 AMPOULES OF 40 MG IN ONE INFUSION
     Route: 042
     Dates: start: 20240614
  2. FERRLECIT [Suspect]
     Active Substance: SODIUM FERRIC GLUCONATE COMPLEX
     Indication: Iron deficiency anaemia

REACTIONS (3)
  - Poisoning [Unknown]
  - Anaphylactoid reaction [Unknown]
  - Overdose [Unknown]

NARRATIVE: CASE EVENT DATE: 20240614
